FAERS Safety Report 25218138 (Version 1)
Quarter: 2025Q2

REPORT INFORMATION
  Report Type: Spontaneous
  Country: US (occurrence: US)
  Receive Date: 20250421
  Receipt Date: 20250421
  Transmission Date: 20250716
  Serious: No
  Sender: VALIDUS
  Company Number: US-VALIDUS PHARMACEUTICALS LLC-US-VDP-2024-019153

PATIENT

DRUGS (1)
  1. BUMETANIDE [Suspect]
     Active Substance: BUMETANIDE
     Indication: Swelling
     Route: 065

REACTIONS (2)
  - Swelling [Recovered/Resolved]
  - Fluid retention [Recovered/Resolved]
